FAERS Safety Report 4602632-4 (Version None)
Quarter: 2005Q1

REPORT INFORMATION
  Report Type: 
  Country: None (occurrence: None)
  Receive Date: 20050309
  Receipt Date: 20041126
  Transmission Date: 20050727
  Serious: Yes (Life-Threatening)
  Sender: FDA-Public Use
  Company Number: JP-BRISTOL-MYERS SQUIBB COMPANY-12776530

PATIENT
  Age: 62 Year
  Sex: Male

DRUGS (11)
  1. TAXOL [Suspect]
     Indication: NON-SMALL CELL LUNG CANCER
     Dosage: 1ST ADMINISTRATION: 22-OCT-04; 2ND ADMINISTRATION: 29-OCT-04
     Route: 041
     Dates: start: 20041105, end: 20041105
  2. PARAPLATIN [Suspect]
     Indication: NON-SMALL CELL LUNG CANCER
     Route: 041
     Dates: start: 20041022, end: 20041022
  3. PENTCILLIN [Concomitant]
     Route: 041
     Dates: start: 20041012, end: 20041103
  4. FLORID-F [Concomitant]
     Dosage: DOSE = 2.5G
     Route: 048
     Dates: start: 20041021, end: 20041024
  5. PREDNISOLONE [Concomitant]
     Route: 048
     Dates: start: 20041022, end: 20041025
  6. MOBIC [Concomitant]
     Route: 048
     Dates: start: 20041021, end: 20041112
  7. ALDIOXA [Concomitant]
     Route: 048
     Dates: start: 20041021, end: 20041112
  8. FAMOTIDINE [Concomitant]
     Route: 048
     Dates: start: 20041102, end: 20041112
  9. ULCERLMIN [Concomitant]
     Dosage: DOSE = 1G
     Route: 048
     Dates: start: 20041102, end: 20041112
  10. MAGNESIUM OXIDE [Concomitant]
     Dosage: DOSE = 0.5G
     Route: 048
     Dates: start: 20041107, end: 20041113
  11. MODACIN [Concomitant]
     Dosage: DOSE = 1G
     Route: 041
     Dates: start: 20041104, end: 20041112

REACTIONS (1)
  - LARGE INTESTINAL ULCER [None]
